FAERS Safety Report 23461487 (Version 1)
Quarter: 2024Q1

REPORT INFORMATION
  Report Type: Spontaneous
  Country: IT (occurrence: IT)
  Receive Date: 20240131
  Receipt Date: 20240131
  Transmission Date: 20240409
  Serious: Yes (Other)
  Sender: FDA-Public Use
  Company Number: None

PATIENT
  Age: 50 Year
  Sex: Female
  Weight: 61 kg

DRUGS (8)
  1. AZITHROMYCIN [Suspect]
     Active Substance: AZITHROMYCIN
     Indication: Pyrexia
     Dosage: 500 MG, 1X/DAY
     Route: 048
     Dates: start: 20240102, end: 20240105
  2. AZITHROMYCIN [Suspect]
     Active Substance: AZITHROMYCIN
     Indication: Cough
  3. ACETAMINOPHEN [Suspect]
     Active Substance: ACETAMINOPHEN
     Dosage: 500 MG OR 1000 MG DAILY FOR 7 DAYS)
     Route: 048
     Dates: end: 20240106
  4. IBUPROFEN [Suspect]
     Active Substance: IBUPROFEN
     Dosage: 400 MG, ALTERNATE DAY (400 MG X 2 DAYS FOR APPROXIMATELY 15 DAYS)
     Route: 048
     Dates: start: 20231215, end: 20231231
  5. LYRICA [Suspect]
     Active Substance: PREGABALIN
     Indication: Neuropathy peripheral
     Dosage: 25 MG (FREQ:3 D;25 MG X 3 DIE)
     Route: 048
     Dates: start: 20231210, end: 20231230
  6. GENTAMICIN [Suspect]
     Active Substance: GENTAMICIN
     Indication: Herpes zoster
     Dosage: 2 DF, 1X/DAY (ONE APPLICATION FOR TWO DAYS)
     Route: 003
     Dates: start: 20231210, end: 20231230
  7. ACYCLOVIR [Suspect]
     Active Substance: ACYCLOVIR
     Indication: Herpes zoster
     Dosage: 3 DF, 1X/DAY (OINTMENT, 3 APPLICATIONS PER DAY)
     Route: 003
     Dates: start: 20231210, end: 20231222
  8. BRIVUDINE [Suspect]
     Active Substance: BRIVUDINE
     Indication: Herpes zoster
     Dosage: 1 DF, 1X/DAY (1 T DAY FOR 7 DAYS)
     Route: 048
     Dates: start: 20231216, end: 20231222

REACTIONS (2)
  - Hepatitis acute [Recovering/Resolving]
  - Off label use [Unknown]

NARRATIVE: CASE EVENT DATE: 20231225
